FAERS Safety Report 6247681-8 (Version None)
Quarter: 2009Q2

REPORT INFORMATION
  Report Type: 
  Country: None (occurrence: None)
  Receive Date: 20090626
  Receipt Date: 20090616
  Transmission Date: 20091009
  Serious: Yes (Other)
  Sender: FDA-Public Use
  Company Number: NZ-ELI_LILLY_AND_COMPANY-NZ200906004143

PATIENT
  Age: 47 Year
  Sex: Female

DRUGS (1)
  1. ZYPREXA [Suspect]
     Indication: BIPOLAR DISORDER
     Dosage: 7.5 MG, DAILY (1/D)
     Route: 048

REACTIONS (1)
  - THROMBOCYTOPENIA [None]
